FAERS Safety Report 15355544 (Version 1)
Quarter: 2018Q3

REPORT INFORMATION
  Report Type: Spontaneous
  Country: US (occurrence: US)
  Receive Date: 20180830
  Receipt Date: 20180830
  Transmission Date: 20181010
  Serious: Yes (Life-Threatening, Hospitalization, Disabling)
  Sender: FDA-Public Use
  Company Number: None

PATIENT
  Age: 70 Year
  Sex: Female
  Weight: 60 kg

DRUGS (2)
  1. COTELLIC [Suspect]
     Active Substance: COBIMETINIB
     Indication: METASTATIC MALIGNANT MELANOMA
     Dates: start: 20171117, end: 20180111
  2. COTELLIC [Suspect]
     Active Substance: COBIMETINIB
     Indication: BRAIN NEOPLASM MALIGNANT
     Dates: start: 20171117, end: 20180111

REACTIONS (2)
  - Hypertrophic cardiomyopathy [None]
  - Cardiac failure [None]

NARRATIVE: CASE EVENT DATE: 20180111
